FAERS Safety Report 8872332 (Version 1)
Quarter: 2012Q4

REPORT INFORMATION
  Report Type: 
  Country: CA (occurrence: CA)
  Receive Date: 20121030
  Receipt Date: 20121030
  Transmission Date: 20130627
  Serious: Yes (Hospitalization, Other)
  Sender: FDA-Public Use
  Company Number: PHMT2007CA01543

PATIENT
  Age: 42 Year
  Sex: Male

DRUGS (1)
  1. SANDOSTATIN LAR [Suspect]
     Indication: CROHN^S DISEASE
     Dosage: 20 mg, every 4 weeks
     Route: 030
     Dates: start: 20070613

REACTIONS (4)
  - Abdominal adhesions [Unknown]
  - Nephrolithiasis [Unknown]
  - Injection site induration [Unknown]
  - Muscle spasms [Unknown]
